FAERS Safety Report 25428412 (Version 1)
Quarter: 2025Q2

REPORT INFORMATION
  Report Type: Spontaneous
  Country: US (occurrence: US)
  Receive Date: 20250612
  Receipt Date: 20250612
  Transmission Date: 20250716
  Serious: No
  Sender: SANOFI AVENTIS
  Company Number: US-SA-2025SA166401

PATIENT
  Sex: Female
  Weight: 118.84 kg

DRUGS (19)
  1. DUPIXENT [Suspect]
     Active Substance: DUPILUMAB
     Indication: Dermatitis atopic
     Route: 058
  2. DUPIXENT [Suspect]
     Active Substance: DUPILUMAB
     Dosage: 300 MG, QOW
     Route: 058
  3. CLOBETASOL [Suspect]
     Active Substance: CLOBETASOL
  4. LINZESS [Suspect]
     Active Substance: LINACLOTIDE
  5. BACTROBAN [Suspect]
     Active Substance: MUPIROCIN CALCIUM
  6. TYLENOL EXTRA STRENGTH [Concomitant]
     Active Substance: ACETAMINOPHEN
  7. SYSTANE (HYPROMELLOSE 2910 (4000 MPA.S)) [Concomitant]
     Active Substance: HYPROMELLOSE 2910 (4000 MPA.S)
  8. MAGNESIUM OXIDE [Concomitant]
     Active Substance: MAGNESIUM OXIDE
  9. DOXYCYCLINE HYCLATE [Concomitant]
     Active Substance: DOXYCYCLINE HYCLATE
  10. TACROLIMUS [Concomitant]
     Active Substance: TACROLIMUS
  11. BUDESONIDE [Concomitant]
     Active Substance: BUDESONIDE
  12. VALSARTAN [Concomitant]
     Active Substance: VALSARTAN
  13. PRIMIDONE [Concomitant]
     Active Substance: PRIMIDONE
  14. PROLIA [Concomitant]
     Active Substance: DENOSUMAB
  15. PROTONIX [Concomitant]
     Active Substance: PANTOPRAZOLE SODIUM
  16. IPRATROPIUM BROMIDE [Concomitant]
     Active Substance: IPRATROPIUM BROMIDE
  17. NEXLIZET [Concomitant]
     Active Substance: BEMPEDOIC ACID\EZETIMIBE
  18. JANUVIA [Concomitant]
     Active Substance: SITAGLIPTIN PHOSPHATE
  19. AIMOVIG [Concomitant]
     Active Substance: ERENUMAB-AOOE

REACTIONS (2)
  - Diarrhoea [Unknown]
  - Application site pain [Unknown]
